FAERS Safety Report 6902909-3 (Version None)
Quarter: 2010Q3

REPORT INFORMATION
  Report Type: 
  Country: None (occurrence: None)
  Receive Date: 20100803
  Receipt Date: 20080831
  Transmission Date: 20110219
  Serious: No
  Sender: FDA-Public Use
  Company Number: US-PFIZER INC-2008074460

PATIENT
  Sex: Male
  Weight: 79.38 kg

DRUGS (3)
  1. LYRICA [Suspect]
     Indication: HERPES ZOSTER
     Dates: start: 20080829
  2. CARDIOVASCULAR SYSTEM DRUGS [Concomitant]
  3. CODEINE [Concomitant]

REACTIONS (3)
  - DIZZINESS [None]
  - DRUG INEFFECTIVE [None]
  - URINE OUTPUT INCREASED [None]
